FAERS Safety Report 17917699 (Version 4)
Quarter: 2021Q3

REPORT INFORMATION
  Report Type: Report from Study
  Country: US (occurrence: US)
  Receive Date: 20200619
  Receipt Date: 20210830
  Transmission Date: 20211014
  Serious: Yes (Other)
  Sender: FDA-Public Use
  Company Number: US-SHIRE-US202019943

PATIENT
  Sex: Male
  Weight: 92 kg

DRUGS (15)
  1. ACETAMINOPHEN. [Concomitant]
     Active Substance: ACETAMINOPHEN
  2. LMX4 [Concomitant]
     Active Substance: LIDOCAINE
  3. CITALOPRAM [Concomitant]
     Active Substance: CITALOPRAM HYDROBROMIDE
  4. CUVITRU [Suspect]
     Active Substance: HUMAN IMMUNOGLOBULIN G
     Indication: IMMUNODEFICIENCY COMMON VARIABLE
     Dosage: 12 GRAM, Q4WEEKS
     Route: 042
     Dates: start: 20191106
  5. CUVITRU [Suspect]
     Active Substance: HUMAN IMMUNOGLOBULIN G
     Dosage: 12 GRAM, Q4WEEKS
     Route: 042
     Dates: start: 20191106
  6. DIPHENHYDRAMINE. [Concomitant]
     Active Substance: DIPHENHYDRAMINE
  7. ASPIRIN [ACETYLSALICYLIC ACID] [Concomitant]
     Active Substance: ASPIRIN
  8. FISH OIL [Concomitant]
     Active Substance: FISH OIL
  9. LOSARTAN. [Concomitant]
     Active Substance: LOSARTAN
  10. CUVITRU [Suspect]
     Active Substance: HUMAN IMMUNOGLOBULIN G
     Dosage: 20 GRAM, Q2WEEKS
     Route: 058
     Dates: start: 20191106
  11. PROBIOTICS NOS [Concomitant]
     Active Substance: PROBIOTICS NOS
  12. EPINEPHRINE. [Concomitant]
     Active Substance: EPINEPHRINE
  13. COENZYME Q10 [Concomitant]
     Active Substance: DIETARY SUPPLEMENT\UBIDECARENONE
  14. ZETIA [Concomitant]
     Active Substance: EZETIMIBE
  15. LIVALO [Concomitant]
     Active Substance: PITAVASTATIN CALCIUM

REACTIONS (3)
  - Lymphoma [Unknown]
  - Infusion site pain [Unknown]
  - Infusion site bruising [Unknown]
